FAERS Safety Report 6810693-7 (Version None)
Quarter: 2010Q2

REPORT INFORMATION
  Report Type: 
  Country: None (occurrence: None)
  Receive Date: 20100630
  Receipt Date: 20070910
  Transmission Date: 20101027
  Serious: No
  Sender: FDA-Public Use
  Company Number: US-PFIZER INC-2007075315

PATIENT
  Sex: Female
  Weight: 66 kg

DRUGS (14)
  1. ESTRING [Suspect]
     Indication: VULVOVAGINAL DRYNESS
     Dates: start: 20070801
  2. WARFARIN SODIUM [Concomitant]
     Route: 048
  3. DILTIAZEM [Concomitant]
     Route: 048
  4. AMIODARONE [Concomitant]
     Route: 048
  5. DIGOXIN [Concomitant]
     Route: 048
  6. LASIX [Concomitant]
     Route: 048
  7. METHENAMINE TAB [Concomitant]
     Route: 048
  8. POTASSIUM [Concomitant]
     Route: 048
  9. ATIVAN [Concomitant]
     Route: 048
  10. CALCIUM CARBONATE [Concomitant]
     Route: 048
  11. MULTI-VITAMINS [Concomitant]
     Route: 048
  12. FOLIC ACID [Concomitant]
     Route: 048
  13. VITAMIN E [Concomitant]
     Route: 048
  14. VITAMIN C [Concomitant]
     Route: 048

REACTIONS (5)
  - BACK PAIN [None]
  - HOT FLUSH [None]
  - NAUSEA [None]
  - VULVOVAGINAL BURNING SENSATION [None]
  - VULVOVAGINAL DISCOMFORT [None]
